FAERS Safety Report 7888649-5 (Version None)
Quarter: 2011Q4

REPORT INFORMATION
  Report Type: 
  Country: None (occurrence: None)
  Receive Date: 20111103
  Receipt Date: 20111031
  Transmission Date: 20120403
  Serious: No
  Sender: FDA-Public Use
  Company Number: US-TEVA-307504USA

PATIENT
  Sex: Female

DRUGS (2)
  1. BUDESONIDE W/FORMOTEROL FUMARATE [Concomitant]
     Dosage: 80/4.5
     Route: 055
  2. PROAIR HFA [Suspect]
     Indication: PNEUMONIA
     Route: 055
     Dates: start: 20111021

REACTIONS (1)
  - BLOOD PRESSURE DECREASED [None]
